FAERS Safety Report 5817307-3 (Version None)
Quarter: 2008Q3

REPORT INFORMATION
  Report Type: 
  Country: None (occurrence: None)
  Receive Date: 20080722
  Receipt Date: 20080715
  Transmission Date: 20090109
  Serious: Yes (Hospitalization)
  Sender: FDA-Public Use
  Company Number: B0529925A

PATIENT
  Age: 52 Year
  Sex: Female

DRUGS (11)
  1. SERETIDE DISKUS FORTE [Suspect]
     Route: 055
     Dates: start: 20050201, end: 20060201
  2. EFFEXOR [Concomitant]
     Route: 065
  3. VAGIFEM [Concomitant]
     Route: 065
  4. NEXIUM [Concomitant]
     Route: 065
  5. KESTINE [Concomitant]
     Route: 065
  6. ACETYLCYSTEINE [Concomitant]
     Route: 065
  7. SALURES [Concomitant]
     Route: 065
  8. PAPAVERIN [Concomitant]
     Route: 065
  9. ALVEDON FORTE [Concomitant]
     Route: 065
  10. CALCICHEW D3 [Concomitant]
     Route: 065
  11. XERODENT [Concomitant]
     Route: 002

REACTIONS (2)
  - ADDISON'S DISEASE [None]
  - ADRENAL INSUFFICIENCY [None]
